FAERS Safety Report 6646031-2 (Version None)
Quarter: 2010Q1

REPORT INFORMATION
  Report Type: 
  Country: None (occurrence: None)
  Receive Date: 20100323
  Receipt Date: 20100311
  Transmission Date: 20100710
  Serious: Yes (Hospitalization)
  Sender: FDA-Public Use
  Company Number: GB-PFIZER INC-2007096793

PATIENT
  Age: 31 Year
  Sex: Male
  Weight: 63.8 kg

DRUGS (9)
  1. MARAVIROC [Suspect]
     Indication: HIV INFECTION
     Dosage: 150 MG, 2X/DAY
     Dates: start: 20071024, end: 20071113
  2. DARUNAVIR [Suspect]
     Indication: HIV INFECTION
     Route: 048
     Dates: start: 20071024, end: 20071113
  3. ETRAVIRINE [Suspect]
     Indication: HIV INFECTION
     Route: 048
     Dates: start: 20071024, end: 20071113
  4. TRUVADA [Concomitant]
     Route: 048
     Dates: start: 20051201, end: 20071013
  5. RITONAVIR [Concomitant]
     Route: 048
     Dates: start: 20071024, end: 20071113
  6. CLOBAZAM [Concomitant]
     Route: 048
  7. CLONAZEPAM [Concomitant]
     Route: 048
  8. NORTRIPTYLINE HCL [Concomitant]
     Route: 048
  9. BEECHAMS [Concomitant]
     Route: 048

REACTIONS (1)
  - DERMATITIS ALLERGIC [None]
